FAERS Safety Report 6538604-2 (Version None)
Quarter: 2010Q1

REPORT INFORMATION
  Report Type: 
  Country: None (occurrence: None)
  Receive Date: 20100113
  Receipt Date: 20100113
  Transmission Date: 20100710
  Serious: Yes (Hospitalization)
  Sender: FDA-Public Use
  Company Number: None

PATIENT
  Age: 39 Year
  Sex: Female
  Weight: 54.6 kg

DRUGS (3)
  1. SUMATRIPTAN SUCCINATE [Suspect]
     Indication: MIGRAINE
     Dosage: 100MG PRN PO
     Route: 048
     Dates: start: 20070101, end: 20090101
  2. VENLAFAXINE [Suspect]
     Indication: DEPRESSION
     Dosage: PO
     Route: 048
  3. LUNESTA [Concomitant]

REACTIONS (6)
  - AGITATION [None]
  - CONFUSIONAL STATE [None]
  - HALLUCINATION [None]
  - HYPERREFLEXIA [None]
  - HYPERVENTILATION [None]
  - RESTLESSNESS [None]
